FAERS Safety Report 9792794 (Version 2)
Quarter: 2014Q2

REPORT INFORMATION
  Report Type: Spontaneous
  Country: US (occurrence: US)
  Receive Date: 20140102
  Receipt Date: 20140402
  Transmission Date: 20141212
  Serious: No
  Sender: FDA-Public Use
  Company Number: US-SA-2013SA121350

PATIENT
  Age: 34 Year
  Sex: Female

DRUGS (8)
  1. AUBAGIO [Suspect]
     Indication: MULTIPLE SCLEROSIS
     Route: 048
     Dates: start: 20130625
  2. MULTIVITAMINS [Concomitant]
     Indication: NUTRITIONAL SUPPLEMENTATION
     Dosage: DOSE: 1 TB
     Route: 048
     Dates: start: 20121221
  3. VITAMIN D3 [Concomitant]
     Indication: NUTRITIONAL SUPPLEMENTATION
     Dosage: DOSE: 5000 OT
     Route: 048
     Dates: start: 20121221
  4. METAMUCIL [Concomitant]
     Indication: CONSTIPATION
     Dosage: DOSE: 1 OT, ROUTE: OT
     Dates: start: 20121221
  5. BACLOFEN [Concomitant]
     Indication: MUSCLE SPASTICITY
     Route: 048
     Dates: start: 20090101
  6. NAPROXEN [Concomitant]
     Indication: PAIN
     Route: 048
     Dates: start: 20090101
  7. NAPROXEN [Concomitant]
     Indication: MIGRAINE
     Route: 048
     Dates: start: 20090101
  8. CRYSELLE [Concomitant]
     Indication: ORAL CONTRACEPTION
     Dosage: DOSE: 0.3-30 OT
     Route: 048

REACTIONS (1)
  - Alopecia [Not Recovered/Not Resolved]
